FAERS Safety Report 13502793 (Version 1)
Quarter: 2017Q2

REPORT INFORMATION
  Report Type: Spontaneous
  Country: US (occurrence: US)
  Receive Date: 20170501
  Receipt Date: 20170501
  Transmission Date: 20170830
  Serious: Yes (Hospitalization, Other)
  Sender: FDA-Public Use
  Company Number: None

PATIENT
  Age: 66 Year
  Sex: Female

DRUGS (13)
  1. SILDENAFIL. [Suspect]
     Active Substance: SILDENAFIL
     Indication: PULMONARY ARTERIAL HYPERTENSION
     Route: 048
     Dates: start: 20170105
  2. FENTANYL. [Concomitant]
     Active Substance: FENTANYL
  3. VICOPROFEN [Concomitant]
     Active Substance: HYDROCODONE BITARTRATE\IBUPROFEN
  4. ASPIRIN. [Concomitant]
     Active Substance: ASPIRIN
  5. PROAIR HFA [Concomitant]
     Active Substance: ALBUTEROL SULFATE
  6. POTASSIUM [Concomitant]
     Active Substance: POTASSIUM
  7. TOPROL XL [Concomitant]
     Active Substance: METOPROLOL SUCCINATE
  8. XANAX [Concomitant]
     Active Substance: ALPRAZOLAM
  9. EFFEXOR [Concomitant]
     Active Substance: VENLAFAXINE HYDROCHLORIDE
  10. CRESTOR [Concomitant]
     Active Substance: ROSUVASTATIN CALCIUM
  11. ADVAIR HFA [Concomitant]
     Active Substance: FLUTICASONE PROPIONATE\SALMETEROL XINAFOATE
  12. LASIX [Concomitant]
     Active Substance: FUROSEMIDE
  13. VITAMIN C [Concomitant]
     Active Substance: ASCORBIC ACID

REACTIONS (3)
  - Cardiac failure congestive [None]
  - Pulmonary hypertension [None]
  - Atrial fibrillation [None]

NARRATIVE: CASE EVENT DATE: 20170425
